FAERS Safety Report 9983036 (Version 1)
Quarter: 2014Q1

REPORT INFORMATION
  Report Type: Report from Study
  Country: US (occurrence: US)
  Receive Date: 20140307
  Receipt Date: 20140307
  Transmission Date: 20141002
  Serious: No
  Sender: FDA-Public Use
  Company Number: US-ABBVIE-13P-163-1176977-00

PATIENT
  Age: 26 Year
  Sex: Female

DRUGS (6)
  1. HUMIRA [Suspect]
     Indication: RHEUMATOID ARTHRITIS
     Dates: start: 20131104
  2. HUMIRA [Suspect]
     Dates: start: 201312
  3. ABILIFY [Concomitant]
     Indication: DEPRESSION
  4. HYDROXYCHLOROQUINE [Concomitant]
     Indication: RHEUMATOID ARTHRITIS
  5. LEFLUNOMIDE [Concomitant]
     Indication: RHEUMATOID ARTHRITIS
  6. HYDROCODONE [Concomitant]
     Indication: RHEUMATOID ARTHRITIS

REACTIONS (5)
  - Hunger [Recovering/Resolving]
  - Toothache [Recovering/Resolving]
  - Food craving [Recovering/Resolving]
  - Eating disorder [Recovering/Resolving]
  - Wisdom teeth removal [Unknown]
